FAERS Safety Report 16184518 (Version 3)
Quarter: 2019Q3

REPORT INFORMATION
  Report Type: Spontaneous
  Country: NZ (occurrence: NZ)
  Receive Date: 20190411
  Receipt Date: 20190711
  Transmission Date: 20191004
  Serious: Yes (Death, Other)
  Sender: FDA-Public Use
  Company Number: NZ-MYLANLABS-2019M1034732

PATIENT
  Age: 58 Year
  Sex: Male

DRUGS (1)
  1. CLOZARIL [Suspect]
     Active Substance: CLOZAPINE
     Indication: SCHIZOPHRENIA
     Dosage: UNK
     Route: 048
     Dates: start: 20070315

REACTIONS (7)
  - White blood cell count decreased [Not Recovered/Not Resolved]
  - White blood cell count increased [Recovered/Resolved]
  - Constipation [Unknown]
  - Metastases to bone [Unknown]
  - Neutropenia [Recovered/Resolved]
  - Lung cancer metastatic [Fatal]
  - Neutrophil count increased [Recovered/Resolved]

NARRATIVE: CASE EVENT DATE: 20190403
